FAERS Safety Report 10207836 (Version 4)
Quarter: 2015Q2

REPORT INFORMATION
  Report Type: Spontaneous
  Country: US (occurrence: US)
  Receive Date: 20140530
  Receipt Date: 20150407
  Transmission Date: 20150821
  Serious: Yes (Life-Threatening, Hospitalization, Disabling, Other)
  Sender: FDA-Public Use
  Company Number: US-GLAXOSMITHKLINE-A1074787A

PATIENT
  Age: 48 Year
  Sex: Male

DRUGS (1)
  1. BENLYSTA [Suspect]
     Active Substance: BELIMUMAB
     Indication: SYSTEMIC LUPUS ERYTHEMATOSUS
     Dosage: 10 MG/KG, CYC
     Route: 042
     Dates: start: 20140422

REACTIONS (4)
  - Colectomy [Recovering/Resolving]
  - Colostomy [Recovering/Resolving]
  - Angina pectoris [Not Recovered/Not Resolved]
  - Large intestine perforation [Recovering/Resolving]

NARRATIVE: CASE EVENT DATE: 20150113
